FAERS Safety Report 13673391 (Version 3)
Quarter: 2017Q3

REPORT INFORMATION
  Report Type: Spontaneous
  Country: US (occurrence: US)
  Receive Date: 20170621
  Receipt Date: 20170817
  Transmission Date: 20171127
  Serious: Yes (Other)
  Sender: FDA-Public Use
  Company Number: US-SAOL THERAPEUTICS-2017SAO01028

PATIENT
  Age: 45 Year
  Sex: Male

DRUGS (23)
  1. BACLOFEN. [Suspect]
     Active Substance: BACLOFEN
     Dosage: 290.4 ?G, \DAY
     Route: 037
     Dates: start: 20170713, end: 20170718
  2. LEVEMIR [Concomitant]
     Active Substance: INSULIN DETEMIR
     Dosage: 22 U, 2X/DAY
     Route: 058
  3. HUMALOG [Concomitant]
     Active Substance: INSULIN LISPRO
     Dosage: 14 U, 2X/DAY + SLIDING SCALE
  4. ALAVERT ALLERGY [Concomitant]
     Active Substance: LORATADINE
     Dosage: 10 MG, 1X/DAY
     Route: 048
  5. SENOKOT-S [Concomitant]
     Active Substance: DOCUSATE SODIUM\SENNOSIDES
     Dosage: 2 TABLETS, AS NEEDED
     Route: 048
  6. FLONASE [Concomitant]
     Active Substance: FLUTICASONE PROPIONATE
     Dosage: UNK, AS NEEDED
  7. BACLOFEN. [Concomitant]
     Active Substance: BACLOFEN
     Dosage: 1 TABLETS, 4X/DAY AS NEEDED
     Route: 048
     Dates: start: 20170515
  8. HUMALOG [Concomitant]
     Active Substance: INSULIN LISPRO
     Dosage: 16 U, 1X/DAY
  9. LIPITOR [Concomitant]
     Active Substance: ATORVASTATIN CALCIUM
     Dosage: 10 MG, 1X/DAY
     Route: 048
  10. BACLOFEN. [Suspect]
     Active Substance: BACLOFEN
     Dosage: 261.2 ?G, \DAY
     Route: 037
     Dates: start: 20170718
  11. NEURONTIN [Concomitant]
     Active Substance: GABAPENTIN
     Dosage: 2 CAPSULES, 3X/DAY
     Route: 048
     Dates: start: 20170515
  12. AMBIEN [Concomitant]
     Active Substance: ZOLPIDEM TARTRATE
     Dosage: 1 TABLETS, 1X/DAY
     Route: 048
     Dates: start: 20170515
  13. OXYBUTYNIN CHLORIDE ER [Concomitant]
     Active Substance: OXYBUTYNIN CHLORIDE
     Dosage: 1 TABLETS, 2X/DAY
     Route: 048
  14. MACROBID [Concomitant]
     Active Substance: NITROFURANTOIN\NITROFURANTOIN MONOHYDRATE
     Dosage: 1 CAPSULES, 1X/DAY
     Route: 048
     Dates: start: 20150424
  15. OXYCODONE HCL ER [Concomitant]
     Active Substance: OXYCODONE HYDROCHLORIDE
     Dosage: 1 TABLETS, 3X/DAY
     Route: 048
     Dates: start: 20170515
  16. TIZANIDINE HCL [Concomitant]
     Active Substance: TIZANIDINE HYDROCHLORIDE
     Dosage: 1 TABLETS, 1X/DAY
     Route: 048
     Dates: start: 20170515
  17. ENDOCET [Concomitant]
     Active Substance: ACETAMINOPHEN\OXYCODONE HYDROCHLORIDE
     Dosage: 1 TABLETS, AS NEEDED
     Route: 048
     Dates: start: 20170515
  18. BACLOFEN. [Suspect]
     Active Substance: BACLOFEN
     Indication: MUSCLE SPASTICITY
     Dosage: 316.1 ?G, \DAY
     Route: 037
  19. VALIUM [Concomitant]
     Active Substance: DIAZEPAM
     Dosage: 1 TABLETS, 1X/DAY
     Route: 048
     Dates: start: 20150716
  20. CYMBALTA [Concomitant]
     Active Substance: DULOXETINE HYDROCHLORIDE
     Dosage: 1 CAPSULES, 1X/DAY
     Route: 048
     Dates: start: 20170221
  21. ALBUTEROL SULFATE. [Concomitant]
     Active Substance: ALBUTEROL SULFATE
     Dosage: 1 DOSAGE UNITS, AS NEEDED
  22. COMBIVENT RESPIMAT [Concomitant]
     Active Substance: ALBUTEROL SULFATE\IPRATROPIUM BROMIDE
     Dosage: 1 DOSAGE UNITS, 3X/DAY
  23. BACLOFEN. [Suspect]
     Active Substance: BACLOFEN
     Dosage: 372 ?G, \DAY
     Route: 037
     Dates: start: 20170622

REACTIONS (10)
  - Clonus [Unknown]
  - Autonomic dysreflexia [Unknown]
  - Post procedural pneumonia [Unknown]
  - Muscle spasms [Unknown]
  - Musculoskeletal pain [Recovering/Resolving]
  - Peripheral swelling [Unknown]
  - Blood urine present [Unknown]
  - Muscle spasticity [Recovering/Resolving]
  - Muscular weakness [Unknown]
  - Device failure [Unknown]

NARRATIVE: CASE EVENT DATE: 20170608
